FAERS Safety Report 5726911-2 (Version None)
Quarter: 2008Q2

REPORT INFORMATION
  Report Type: 
  Country: None (occurrence: None)
  Receive Date: 20080502
  Receipt Date: 20080422
  Transmission Date: 20081010
  Serious: Yes (Death, Hospitalization, Congenital Anomaly, Other)
  Sender: FDA-Public Use
  Company Number: FR-PFIZER INC-2008037309

PATIENT
  Sex: Male

DRUGS (3)
  1. NEURONTIN [Suspect]
     Dosage: DAILY DOSE:500MG
  2. DEPAKENE [Suspect]
     Dosage: DAILY DOSE:1GRAM
  3. FOLIC ACID [Concomitant]

REACTIONS (2)
  - DIAPHRAGMATIC HERNIA [None]
  - DRUG EXPOSURE DURING PREGNANCY [None]
